FAERS Safety Report 17169483 (Version 3)
Quarter: 2020Q1

REPORT INFORMATION
  Report Type: Spontaneous
  Country: PT (occurrence: PT)
  Receive Date: 20191218
  Receipt Date: 20200116
  Transmission Date: 20200409
  Serious: Yes (Disabling, Other)
  Sender: FDA-Public Use
  Company Number: NVSC2019PT013888

PATIENT
  Age: 61 Year
  Sex: Male

DRUGS (8)
  1. ALENDRONIC ACID [Suspect]
     Active Substance: ALENDRONIC ACID
     Indication: LUMBAR VERTEBRAL FRACTURE
  2. CALCIUM CARBONATE. [Concomitant]
     Active Substance: CALCIUM CARBONATE
     Indication: OSTEOPOROSIS
  3. CHOLECALCIFEROL [Concomitant]
     Active Substance: CHOLECALCIFEROL
     Indication: LUMBAR VERTEBRAL FRACTURE
  4. CALCIUM CARBONATE. [Concomitant]
     Active Substance: CALCIUM CARBONATE
     Indication: PATHOLOGICAL FRACTURE PROPHYLAXIS
     Dosage: 1500 MG PER DAY
     Route: 048
     Dates: start: 201501
  5. CHOLECALCIFEROL [Concomitant]
     Active Substance: CHOLECALCIFEROL
     Indication: OSTEOPOROSIS
     Dosage: 400 UI/DAY
     Route: 065
     Dates: start: 201501
  6. ALENDRONIC ACID [Suspect]
     Active Substance: ALENDRONIC ACID
     Indication: OSTEOPOROSIS
     Dosage: 70 MG PER WEEK
     Route: 048
     Dates: start: 201501
  7. CALCIUM CARBONATE. [Concomitant]
     Active Substance: CALCIUM CARBONATE
     Indication: LUMBAR VERTEBRAL FRACTURE
  8. CHOLECALCIFEROL [Concomitant]
     Active Substance: CHOLECALCIFEROL
     Indication: PATHOLOGICAL FRACTURE PROPHYLAXIS

REACTIONS (11)
  - Atypical fracture [Unknown]
  - Bone pain [Unknown]
  - Product use issue [Unknown]
  - Atypical femur fracture [Unknown]
  - Atypical fracture [Unknown]
  - Osteoporotic fracture [Unknown]
  - Bone density decreased [Unknown]
  - Atypical fracture [Unknown]
  - Tibia fracture [Unknown]
  - Off label use [Unknown]
  - Tibia fracture [Unknown]

NARRATIVE: CASE EVENT DATE: 2015
